FAERS Safety Report 11968317 (Version 3)
Quarter: 2016Q1

REPORT INFORMATION
  Report Type: Spontaneous
  Country: CA (occurrence: CA)
  Receive Date: 20160128
  Receipt Date: 20160302
  Transmission Date: 20160526
  Serious: Yes (Hospitalization)
  Sender: FDA-Public Use
  Company Number: CA-ROCHE-1700204

PATIENT
  Age: 65 Year
  Sex: Female

DRUGS (7)
  1. XOLAIR [Suspect]
     Active Substance: OMALIZUMAB
     Route: 058
     Dates: start: 20141126
  2. ZENHALE [Concomitant]
     Active Substance: FORMOTEROL FUMARATE\MOMETASONE FUROATE
  3. VENTOLIN [Concomitant]
     Active Substance: ALBUTEROL SULFATE
  4. XOLAIR [Suspect]
     Active Substance: OMALIZUMAB
     Route: 058
     Dates: start: 20150902
  5. XOLAIR [Suspect]
     Active Substance: OMALIZUMAB
     Indication: ASTHMA
     Route: 058
     Dates: start: 20140212
  6. XOLAIR [Suspect]
     Active Substance: OMALIZUMAB
     Route: 058
     Dates: start: 20150930
  7. XOLAIR [Suspect]
     Active Substance: OMALIZUMAB
     Route: 058
     Dates: start: 20160224

REACTIONS (16)
  - Vomiting [Unknown]
  - Fatigue [Unknown]
  - Influenza [Unknown]
  - Lung disorder [Unknown]
  - Asthenia [Unknown]
  - Stress [Unknown]
  - Acute sinusitis [Unknown]
  - Vertigo [Not Recovered/Not Resolved]
  - Labyrinthitis [Unknown]
  - Blood pressure increased [Unknown]
  - Asthma [Unknown]
  - Dyspnoea [Unknown]
  - Somnolence [Unknown]
  - Dizziness [Recovered/Resolved]
  - Heart rate increased [Unknown]
  - Sinus congestion [Recovering/Resolving]

NARRATIVE: CASE EVENT DATE: 20141126
